FAERS Safety Report 8733615 (Version 5)
Quarter: 2012Q4

REPORT INFORMATION
  Report Type: 
  Country: US (occurrence: US)
  Receive Date: 20120821
  Receipt Date: 20121101
  Transmission Date: 20130627
  Serious: Yes (Hospitalization, Other)
  Sender: FDA-Public Use
  Company Number: US-PFIZER INC-2012199854

PATIENT
  Age: 64 Year
  Sex: Female

DRUGS (16)
  1. EXEMESTANE [Suspect]
     Indication: BREAST CANCER FEMALE
     Dosage: 25 mg, 1x/day
     Route: 048
     Dates: start: 20120611, end: 20120815
  2. EXEMESTANE [Suspect]
     Dosage: UNK
     Route: 048
     Dates: start: 20121016
  3. ALEVE [Concomitant]
     Dosage: UNK
     Route: 048
  4. VITAMIN B12 [Concomitant]
     Dosage: UNK
     Route: 048
  5. FISH OIL [Concomitant]
     Dosage: UNK
  6. LEVOTHYROXINE SODIUM [Concomitant]
     Dosage: 50 ug, UNK
     Route: 048
  7. MAGNESIUM [Concomitant]
     Dosage: 250 mg, UNK
     Route: 048
  8. METAMUCIL [Concomitant]
     Dosage: UNK
     Route: 048
  9. METOPROLOL SUCCINATE [Concomitant]
     Dosage: UNK
     Route: 048
  10. SYNVISC [Concomitant]
     Dosage: 8 mg/ml, 1x injection
  11. VITAMIN C [Concomitant]
     Dosage: UNK
     Route: 048
  12. VITAMIN D [Concomitant]
     Dosage: 1000 IU, UNK
     Route: 048
  13. ZANTAC [Concomitant]
     Dosage: UNK
     Route: 048
  14. XANAX [Concomitant]
     Dosage: 0.25 mg, UNK
     Route: 048
  15. PRESERVISION AREDS [Concomitant]
     Route: 048
  16. ALPRAZOLAM [Concomitant]
     Dosage: 0.25 mg, UNK
     Route: 048

REACTIONS (11)
  - Diarrhoea [Recovered/Resolved]
  - Dehydration [Unknown]
  - Anal haemorrhage [Unknown]
  - Anorectal discomfort [Unknown]
  - Macular degeneration [Unknown]
  - Visual impairment [Recovering/Resolving]
  - Weight decreased [Unknown]
  - Diarrhoea [Recovered/Resolved]
  - Faeces discoloured [Unknown]
  - Asthenia [Unknown]
  - Activities of daily living impaired [Unknown]
